FAERS Safety Report 21155718 (Version 3)
Quarter: 2022Q3

REPORT INFORMATION
  Report Type: Report from Study
  Country: EG (occurrence: EG)
  Receive Date: 20220801
  Receipt Date: 20220805
  Transmission Date: 20221027
  Serious: Yes (Other)
  Sender: FDA-Public Use
  Company Number: EG-NOVARTISPH-NVSC2022EG171651

PATIENT
  Age: 54 Year
  Sex: Female

DRUGS (11)
  1. ENTRESTO [Suspect]
     Active Substance: SACUBITRIL\VALSARTAN
     Indication: Cardiac failure
     Dosage: 50 MG, BID
     Route: 048
     Dates: start: 20220606, end: 20220610
  2. ENTRESTO [Suspect]
     Active Substance: SACUBITRIL\VALSARTAN
     Dosage: 50 MG, BID
     Route: 048
     Dates: start: 20220724, end: 20220727
  3. LINAGLIPTIN [Concomitant]
     Active Substance: LINAGLIPTIN
     Indication: Diabetes mellitus
     Dosage: 1 DOSAGE FORM, QD (BEFORE BREAKFAST)
     Route: 048
  4. TOUJEO [Concomitant]
     Active Substance: INSULIN GLARGINE
     Indication: Diabetes mellitus
     Dosage: 10 DOSAGE FORM, QD ((PEN) 2 YEARS AGO, AT NIGHT)
     Route: 065
  5. NEBIVOLOL [Concomitant]
     Active Substance: NEBIVOLOL
     Indication: Hypertension
     Dosage: 0.5 DOSAGE FORM, QD
     Route: 048
     Dates: start: 202206
  6. DAPAGLIFLOZIN [Concomitant]
     Active Substance: DAPAGLIFLOZIN
     Indication: Diabetes mellitus
     Dosage: 1 DOSAGE FORM, QD (AT NIGHT)
     Route: 048
     Dates: start: 202206
  7. ALDOMET [Concomitant]
     Active Substance: METHYLDOPA
     Indication: Hypertension
     Dosage: 1 DOSAGE FORM, BID
     Route: 048
     Dates: start: 202205
  8. METOPROLOL SUCCINATE [Concomitant]
     Active Substance: METOPROLOL SUCCINATE
     Indication: Hypertension
     Dosage: 1 DOSAGE FORM, BID (50)
     Route: 048
     Dates: start: 202202
  9. METOPROLOL SUCCINATE [Concomitant]
     Active Substance: METOPROLOL SUCCINATE
     Dosage: 1 DOSAGE FORM, QD (100)
     Route: 048
  10. METOPROLOL SUCCINATE [Concomitant]
     Active Substance: METOPROLOL SUCCINATE
     Dosage: 1 DOSAGE FORM, QD (200)
     Route: 048
  11. ACETAMINOPHEN [Concomitant]
     Active Substance: ACETAMINOPHEN
     Indication: Pain
     Dosage: UNK
     Route: 048
     Dates: start: 20220625

REACTIONS (12)
  - Hypertension [Recovering/Resolving]
  - Hypotension [Recovering/Resolving]
  - Blood parathyroid hormone increased [Unknown]
  - Chest discomfort [Recovered/Resolved]
  - Insomnia [Recovered/Resolved]
  - Dyspnoea [Recovered/Resolved]
  - Mobility decreased [Recovered/Resolved]
  - Blood cholesterol increased [Unknown]
  - Blood creatinine increased [Unknown]
  - Disease recurrence [Recovered/Resolved]
  - Mouth ulceration [Recovering/Resolving]
  - Blood sodium increased [Not Recovered/Not Resolved]

NARRATIVE: CASE EVENT DATE: 20220601
